FAERS Safety Report 21293321 (Version 1)
Quarter: 2022Q3

REPORT INFORMATION
  Report Type: Spontaneous
  Country: US (occurrence: US)
  Receive Date: 20220905
  Receipt Date: 20220905
  Transmission Date: 20221026
  Serious: No
  Sender: FDA-Public Use
  Company Number: US-TEVA-2022-US-2068823

PATIENT
  Age: 1 Year
  Sex: Female
  Weight: 9 kg

DRUGS (3)
  1. PROGLYCEM [Suspect]
     Active Substance: DIAZOXIDE
     Indication: Hyperinsulinism
     Dosage: 1 MILLIGRAM DAILY; 50 MG/ML, SUSPENSION
     Route: 065
     Dates: start: 202107
  2. PROGLYCEM [Suspect]
     Active Substance: DIAZOXIDE
     Indication: Hypoglycaemia
     Dosage: 1.8 MILLIGRAM DAILY; 50 MG/ML, SUSPENSION
     Route: 065
     Dates: start: 202107
  3. DIURIL [Concomitant]
     Active Substance: CHLOROTHIAZIDE
     Indication: Fluid retention

REACTIONS (2)
  - Therapeutic product effect decreased [Unknown]
  - Drug ineffective [Unknown]

NARRATIVE: CASE EVENT DATE: 20220701
